FAERS Safety Report 4361021-0 (Version None)
Quarter: 2004Q2

REPORT INFORMATION
  Report Type: 
  Country: None (occurrence: None)
  Receive Date: 20040517
  Receipt Date: 20040428
  Transmission Date: 20050107
  Serious: Yes (Other)
  Sender: FDA-Public Use
  Company Number: D01200401472

PATIENT
  Age: 37 Year
  Sex: Male
  Weight: 102 kg

DRUGS (4)
  1. ENOXAPARIN SODIUM [Suspect]
     Indication: MYOCARDIAL INFARCTION
     Dosage: 2.5 MG QD - SUBCUTANEOUS
     Route: 058
     Dates: start: 20031219, end: 20031223
  2. ASPIRIN [Concomitant]
  3. CLOPIDOGREL BISULFATE [Concomitant]
  4. ATENOLOL [Concomitant]

REACTIONS (2)
  - CATHETER RELATED COMPLICATION [None]
  - DRUG INEFFECTIVE [None]
